FAERS Safety Report 9008834 (Version 1)
Quarter: 2013Q1

REPORT INFORMATION
  Report Type: Spontaneous
  Country: IE (occurrence: IE)
  Receive Date: 20130111
  Receipt Date: 20130111
  Transmission Date: 20140127
  Serious: Yes (Other)
  Sender: FDA-Public Use
  Company Number: CHPA2013IE000866

PATIENT
  Sex: Female

DRUGS (1)
  1. LAMISIL [Suspect]
     Dosage: UNK, UNK
     Route: 061

REACTIONS (1)
  - Electrocardiogram QT prolonged [Unknown]
